FAERS Safety Report 18329569 (Version 2)
Quarter: 2020Q4

REPORT INFORMATION
  Report Type: Spontaneous
  Country: US (occurrence: US)
  Receive Date: 20200930
  Receipt Date: 20201014
  Transmission Date: 20210113
  Serious: No
  Sender: FDA-Public Use
  Company Number: US-PFIZER INC-2019000901

PATIENT
  Age: 44 Year
  Sex: Male
  Weight: 211 kg

DRUGS (2)
  1. CHANTIX [Suspect]
     Active Substance: VARENICLINE TARTRATE
     Dosage: 0.5 MG, TWICE DAILY [STRENGTH: 0.5 MG BID (TWICE A DAY)]
  2. CHANTIX [Suspect]
     Active Substance: VARENICLINE TARTRATE
     Indication: SMOKING CESSATION THERAPY
     Dosage: 1 MG, TWICE DAILY
     Route: 048

REACTIONS (2)
  - Off label use [Unknown]
  - Drug ineffective [Unknown]
